FAERS Safety Report 12073963 (Version 4)
Quarter: 2016Q1

REPORT INFORMATION
  Report Type: Spontaneous
  Country: US (occurrence: US)
  Receive Date: 20160212
  Receipt Date: 20160310
  Transmission Date: 20160526
  Serious: Yes (Death, Other)
  Sender: FDA-Public Use
  Company Number: US-TEVA-634643USA

PATIENT
  Age: 38 Year
  Sex: Male
  Weight: 91.2 kg

DRUGS (10)
  1. VERAPAMIL [Suspect]
     Active Substance: VERAPAMIL HYDROCHLORIDE
     Indication: COMPLETED SUICIDE
     Route: 065
  2. LORAZEPAM. [Suspect]
     Active Substance: LORAZEPAM
     Indication: COMPLETED SUICIDE
     Route: 065
  3. TADALAFIL [Suspect]
     Active Substance: TADALAFIL
     Indication: COMPLETED SUICIDE
     Route: 065
  4. DICLOFENAC [Suspect]
     Active Substance: DICLOFENAC
     Indication: COMPLETED SUICIDE
     Route: 065
  5. PREGABALIN. [Suspect]
     Active Substance: PREGABALIN
     Indication: COMPLETED SUICIDE
     Route: 065
  6. DIPHENHYDRAMINE. [Suspect]
     Active Substance: DIPHENHYDRAMINE
     Indication: COMPLETED SUICIDE
     Route: 048
  7. NAPROXEN. [Suspect]
     Active Substance: NAPROXEN
     Indication: COMPLETED SUICIDE
     Route: 048
  8. DULOXETINE. [Suspect]
     Active Substance: DULOXETINE
     Indication: COMPLETED SUICIDE
     Route: 065
  9. OMEPRAZOLE. [Suspect]
     Active Substance: OMEPRAZOLE
     Indication: COMPLETED SUICIDE
     Route: 065
  10. PROPRANOLOL [Suspect]
     Active Substance: PROPRANOLOL\PROPRANOLOL HYDROCHLORIDE
     Indication: COMPLETED SUICIDE
     Route: 065

REACTIONS (4)
  - Intentional overdose [Fatal]
  - Toxicity to various agents [Fatal]
  - Completed suicide [Fatal]
  - Unresponsive to stimuli [Unknown]
